FAERS Safety Report 4557085-1 (Version None)
Quarter: 2005Q1

REPORT INFORMATION
  Report Type: 
  Country: None (occurrence: None)
  Receive Date: 20050103
  Receipt Date: 20040910
  Transmission Date: 20050727
  Serious: Yes (Other)
  Sender: FDA-Public Use
  Company Number: 2004UW19098

PATIENT
  Age: 40 Year
  Sex: Female
  Weight: 60.782 kg

DRUGS (1)
  1. CRESTOR [Suspect]
     Indication: HYPERCHOLESTEROLAEMIA
     Dosage: 10 MG QD PO
     Route: 048

REACTIONS (2)
  - INSOMNIA [None]
  - NIGHTMARE [None]
